FAERS Safety Report 24640544 (Version 1)
Quarter: 2024Q4

REPORT INFORMATION
  Report Type: Spontaneous
  Country: KR (occurrence: KR)
  Receive Date: 20241120
  Receipt Date: 20241120
  Transmission Date: 20250114
  Serious: Yes (Other)
  Sender: CELLTRION
  Company Number: KR-CELLTRION INC.-2024KR028494

PATIENT

DRUGS (1)
  1. RITUXIMAB [Suspect]
     Active Substance: RITUXIMAB
     Indication: Neuromyelitis optica spectrum disorder
     Dosage: 375 MG/M2 /WEEK/ FOR 4 WEEKS
     Route: 042

REACTIONS (3)
  - Neuromyelitis optica spectrum disorder [Recovering/Resolving]
  - Rebound effect [Unknown]
  - Intentional product use issue [Unknown]
